FAERS Safety Report 4512195-X (Version None)
Quarter: 2004Q4

REPORT INFORMATION
  Report Type: 
  Country: None (occurrence: None)
  Receive Date: 20041123
  Receipt Date: 20041103
  Transmission Date: 20050328
  Serious: Yes (Hospitalization, Disabling)
  Sender: FDA-Public Use
  Company Number: 29612

PATIENT
  Age: 52 Year
  Sex: Male

DRUGS (4)
  1. FLUORESCITE 10% INJECTION [Suspect]
     Indication: DIAGNOSTIC PROCEDURE
     Dosage: 7MG ONCE/7 MG ONCE/125 G ONCE
     Dates: start: 19991222, end: 19991222
  2. FLUORESCITE 10% INJECTION [Suspect]
     Indication: DIAGNOSTIC PROCEDURE
     Dosage: 7MG ONCE/7 MG ONCE/125 G ONCE
     Dates: start: 20000315, end: 20000315
  3. FLUORESCITE 10% INJECTION [Suspect]
     Indication: DIAGNOSTIC PROCEDURE
     Dosage: 7MG ONCE/7 MG ONCE/125 G ONCE
     Dates: start: 20030210, end: 20030210
  4. MIRTAZAPIN [Concomitant]

REACTIONS (13)
  - CEREBROSPINAL FISTULA [None]
  - DEPRESSED LEVEL OF CONSCIOUSNESS [None]
  - ELECTROENCEPHALOGRAM ABNORMAL [None]
  - HEAD INJURY [None]
  - MENINGOCELE [None]
  - NEUROGENIC BLADDER [None]
  - NEUROPATHIC PAIN [None]
  - OVERDOSE [None]
  - PARAPARESIS [None]
  - PARAPLEGIA [None]
  - POST PROCEDURAL COMPLICATION [None]
  - SIMPLE PARTIAL SEIZURES [None]
  - SOMNOLENCE [None]
